FAERS Safety Report 16781465 (Version 2)
Quarter: 2019Q4

REPORT INFORMATION
  Report Type: Spontaneous
  Country: JP (occurrence: JP)
  Receive Date: 20190906
  Receipt Date: 20191025
  Transmission Date: 20200122
  Serious: Yes (Other)
  Sender: FDA-Public Use
  Company Number: JP-PFIZER INC-2019380308

PATIENT
  Age: 89 Year
  Sex: Female

DRUGS (1)
  1. JZOLOFT 25MG [Suspect]
     Active Substance: SERTRALINE HYDROCHLORIDE
     Dosage: 25 MG, UNK
     Route: 048

REACTIONS (4)
  - Mental disorder [Unknown]
  - Urinary retention [Unknown]
  - Chest pain [Recovered/Resolved]
  - Physical deconditioning [Unknown]
